FAERS Safety Report 7670117-7 (Version None)
Quarter: 2011Q3

REPORT INFORMATION
  Report Type: 
  Country: None (occurrence: None)
  Receive Date: 20110808
  Receipt Date: 20110729
  Transmission Date: 20111222
  Serious: Yes (Hospitalization, Other)
  Sender: FDA-Public Use
  Company Number: PHEH2008US08794

PATIENT
  Sex: Female

DRUGS (29)
  1. AREDIA [Suspect]
     Dosage: UNK
  2. PERCOCET [Concomitant]
     Indication: PAIN
     Dosage: UNK
  3. AUGMENTIN '125' [Concomitant]
  4. COUMADIN [Concomitant]
     Dosage: 4 MG, UNK
  5. PROTONIX [Concomitant]
  6. FUROSEMIDE [Concomitant]
     Dosage: 20 MG, UNK
  7. ENOXAPARIN [Concomitant]
     Dosage: UNK
  8. AMLODIPINE [Concomitant]
  9. FERROUS SULFATE TAB [Concomitant]
     Dosage: 325 MG, UNK
  10. AMBIEN [Concomitant]
     Dosage: 10 MG, UNK
  11. MORPHINE [Concomitant]
     Dosage: UNK
  12. NIASPAN [Concomitant]
  13. PRILOSEC [Concomitant]
  14. ZOMETA [Suspect]
  15. FEMARA [Concomitant]
     Dosage: 2.5 MG, QD
     Route: 048
  16. CIPROFLAXACIN [Concomitant]
     Dosage: 500 MG, UNK
  17. LOVENOX [Concomitant]
     Dosage: 60 MG, UNK
     Route: 058
  18. LASIX [Concomitant]
     Dosage: 20 MG, UNK
  19. HEP-LOCK [Concomitant]
     Dosage: UNK
  20. LISINOPRIL [Concomitant]
  21. NITROFURANTOIN [Concomitant]
  22. URSODIOL [Concomitant]
  23. FEOSOL [Concomitant]
  24. BERIPLEX P/N [Concomitant]
     Dosage: UNK
  25. PRILOSEC [Concomitant]
     Dosage: 20 MG, BID
     Route: 048
  26. METRONIDAZOLE [Concomitant]
  27. CLINDAMYCIN [Concomitant]
  28. HORMONES NOS [Concomitant]
     Dosage: UNK
     Dates: end: 20050501
  29. WARFARIN SODIUM [Concomitant]
     Dosage: UNK

REACTIONS (40)
  - ANHEDONIA [None]
  - OEDEMA PERIPHERAL [None]
  - ARRHYTHMIA [None]
  - HYPERTENSION [None]
  - RENAL CYST [None]
  - SINUSITIS [None]
  - BILIARY CIRRHOSIS [None]
  - HEPATIC CIRRHOSIS [None]
  - HEPATIC NEOPLASM [None]
  - HYPERPLASTIC CHOLECYSTOPATHY [None]
  - ADENOMYOSIS [None]
  - DISABILITY [None]
  - PAIN [None]
  - DIVERTICULUM [None]
  - LYMPHADENOPATHY [None]
  - FOOT DEFORMITY [None]
  - ONYCHOLYSIS [None]
  - HEPATIC LESION [None]
  - DENTURE WEARER [None]
  - SWELLING FACE [None]
  - METASTASES TO BONE [None]
  - ARTHROPATHY [None]
  - METASTASES TO SPINE [None]
  - UTERINE MALPOSITION [None]
  - OSTEONECROSIS OF JAW [None]
  - INJURY [None]
  - ANXIETY [None]
  - BONE DISORDER [None]
  - DEEP VEIN THROMBOSIS [None]
  - EATING DISORDER [None]
  - OSTEORADIONECROSIS [None]
  - VENOUS THROMBOSIS [None]
  - LIVER DISORDER [None]
  - PAIN IN EXTREMITY [None]
  - FISTULA [None]
  - URINARY TRACT INFECTION [None]
  - BLOOD CHOLESTEROL INCREASED [None]
  - IRON DEFICIENCY ANAEMIA [None]
  - ASTHENIA [None]
  - HYPERMETABOLISM [None]
